FAERS Safety Report 4603872-0 (Version None)
Quarter: 2005Q1

REPORT INFORMATION
  Report Type: 
  Country: None (occurrence: None)
  Receive Date: 20050308
  Receipt Date: 20050308
  Transmission Date: 20050727
  Serious: No
  Sender: FDA-Public Use
  Company Number: None

PATIENT
  Sex: Female
  Weight: 53.7059 kg

DRUGS (5)
  1. STRATTERA [Suspect]
     Indication: ATTENTION DEFICIT/HYPERACTIVITY DISORDER
     Dosage: 25 MG  AM + NOON  ORAL
     Route: 048
     Dates: start: 20050222, end: 20050302
  2. MIRALAX [Concomitant]
  3. PROTONIX [Concomitant]
  4. CALTRATE PLUS [Concomitant]
  5. COLACE [Concomitant]

REACTIONS (2)
  - PULSE ABNORMAL [None]
  - TACHYCARDIA [None]
